FAERS Safety Report 14015006 (Version 4)
Quarter: 2018Q1

REPORT INFORMATION
  Report Type: Other
  Country: IT (occurrence: IT)
  Receive Date: 20170927
  Receipt Date: 20180226
  Transmission Date: 20180508
  Serious: Yes (Other)
  Sender: FDA-Public Use
  Company Number: IT-ASTELLAS-2017US036582

PATIENT
  Age: 53 Year
  Sex: Male
  Weight: 57 kg

DRUGS (6)
  1. DILATREND [Concomitant]
     Active Substance: CARVEDILOL
     Indication: HYPERTENSION
     Route: 048
  2. EVEROLIMUS. [Interacting]
     Active Substance: EVEROLIMUS
     Indication: IMMUNOSUPPRESSION
     Dosage: 0.5 MG, ONCE DAILY
     Route: 065
     Dates: start: 201512
  3. AMLODIPINE [Concomitant]
     Active Substance: AMLODIPINE BESYLATE
     Indication: HYPERTENSION
     Dosage: UNK UNK, UNKNOWN FREQ.
     Route: 065
  4. TACROLIMUS. [Suspect]
     Active Substance: TACROLIMUS
     Indication: IMMUNOSUPPRESSION
     Route: 048
     Dates: start: 201505
  5. REGORAFENIB [Interacting]
     Active Substance: REGORAFENIB
     Indication: HEPATIC CANCER
     Dosage: 160 MG (4DF), ONCE DAILY
     Route: 048
     Dates: start: 20170418
  6. REGORAFENIB [Interacting]
     Active Substance: REGORAFENIB
     Route: 065

REACTIONS (3)
  - Immunosuppressant drug level increased [Unknown]
  - Drug interaction [Unknown]
  - Palmar-plantar erythrodysaesthesia syndrome [Recovering/Resolving]

NARRATIVE: CASE EVENT DATE: 20170715
